FAERS Safety Report 7870881-8 (Version None)
Quarter: 2011Q4

REPORT INFORMATION
  Report Type: 
  Country: None (occurrence: None)
  Receive Date: 20111029
  Receipt Date: 20110218
  Transmission Date: 20120403
  Serious: No
  Sender: FDA-Public Use
  Company Number: US-AMGEN-USASP2011009876

PATIENT
  Age: 72 Year
  Sex: Female

DRUGS (3)
  1. TREXALL [Concomitant]
     Dates: start: 20100501
  2. ENBREL [Suspect]
     Indication: RHEUMATOID ARTHRITIS
     Dosage: 75 MG, QWK
     Dates: start: 20101017
  3. METHOTREXATE [Concomitant]
     Dosage: 4 MG, QWK
     Dates: start: 20100501

REACTIONS (10)
  - PAIN IN EXTREMITY [None]
  - ARTHRALGIA [None]
  - SYNOVIAL CYST [None]
  - DRUG INEFFECTIVE [None]
  - HEADACHE [None]
  - PHOTOPSIA [None]
  - CHILLS [None]
  - RHEUMATOID ARTHRITIS [None]
  - OEDEMA PERIPHERAL [None]
  - PERIPHERAL COLDNESS [None]
